FAERS Safety Report 9964081 (Version 1)
Quarter: 2014Q1

REPORT INFORMATION
  Report Type: Spontaneous
  Country: ES (occurrence: ES)
  Receive Date: 20140305
  Receipt Date: 20140305
  Transmission Date: 20141002
  Serious: Yes (Other)
  Sender: FDA-Public Use
  Company Number: ES-GLAXOSMITHKLINE-B0974038A

PATIENT
  Age: 80 Year
  Sex: Female
  Weight: 51 kg

DRUGS (1)
  1. PLUSVENT ACCUHALER [Suspect]
     Indication: ASTHMA
     Route: 055
     Dates: start: 20130805

REACTIONS (1)
  - Sinus tachycardia [Recovered/Resolved]
